FAERS Safety Report 13231142 (Version 2)
Quarter: 2017Q1

REPORT INFORMATION
  Report Type: Spontaneous
  Country: US (occurrence: US)
  Receive Date: 20170214
  Receipt Date: 20170227
  Transmission Date: 20170428
  Serious: No
  Sender: FDA-Public Use
  Company Number: US-009507513-1701USA008482

PATIENT
  Sex: Male

DRUGS (3)
  1. NOXAFIL [Suspect]
     Active Substance: POSACONAZOLE
     Indication: PRODUCT USED FOR UNKNOWN INDICATION
     Dosage: UNK UNK, UNKNOWN
     Route: 065
  2. NOXAFIL [Suspect]
     Active Substance: POSACONAZOLE
     Dosage: UNK UNK, UNKNOWN
     Route: 065
  3. NOXAFIL [Suspect]
     Active Substance: POSACONAZOLE
     Dosage: UNK UNK, UNKNOWN
     Route: 065

REACTIONS (2)
  - No adverse event [Unknown]
  - Incorrect product storage [Unknown]
